FAERS Safety Report 5005748-6 (Version None)
Quarter: 2006Q2

REPORT INFORMATION
  Report Type: 
  Country: None (occurrence: None)
  Receive Date: 20060518
  Receipt Date: 20060418
  Transmission Date: 20061013
  Serious: Yes (Death, Hospitalization)
  Sender: FDA-Public Use
  Company Number: JP-BRISTOL-MYERS SQUIBB COMPANY-13356829

PATIENT
  Age: 74 Year
  Sex: Male

DRUGS (11)
  1. ENDOXAN [Suspect]
     Indication: HODGKIN'S DISEASE
     Route: 041
     Dates: start: 20060222, end: 20060228
  2. NEUTROGIN [Suspect]
     Indication: NEUTROPENIA
     Route: 058
     Dates: start: 20051201, end: 20060220
  3. RITUXAN [Suspect]
     Indication: HODGKIN'S DISEASE
     Route: 058
     Dates: start: 20051225, end: 20060227
  4. DOXORUBICIN HCL [Concomitant]
     Dates: start: 20051122, end: 20060228
  5. VINCRISTINE [Concomitant]
     Dates: start: 20051122, end: 20060228
  6. PREDNISOLONE [Concomitant]
     Dates: start: 20051122, end: 20060228
  7. ADALAT [Concomitant]
     Dates: start: 20051118
  8. BUP-4 [Concomitant]
     Dates: start: 20051128
  9. PURSENNID [Concomitant]
     Dates: start: 20051123
  10. MAGMITT [Concomitant]
     Dates: start: 20051124
  11. LENDORMIN [Concomitant]
     Dates: start: 20051118

REACTIONS (3)
  - BONE MARROW FAILURE [None]
  - INTERSTITIAL LUNG DISEASE [None]
  - RESPIRATORY FAILURE [None]
